FAERS Safety Report 9031169 (Version 2)
Quarter: 2013Q1

REPORT INFORMATION
  Report Type: Spontaneous
  Country: US (occurrence: US)
  Receive Date: 20130123
  Receipt Date: 20130207
  Transmission Date: 20140127
  Serious: No
  Sender: FDA-Public Use
  Company Number: US-ASTRAZENECA-2013SE02227

PATIENT
  Age: 13 Year
  Sex: Male
  Weight: 48.1 kg

DRUGS (3)
  1. PULMICORT FLEXHALER [Suspect]
     Indication: ASTHMA
     Route: 055
     Dates: start: 2008
  2. PULMICORT FLEXHALER [Suspect]
     Indication: ASTHMA
     Route: 055
     Dates: start: 2008
  3. SINGULAIR [Concomitant]
     Indication: ASTHMA

REACTIONS (3)
  - Pulmonary function test abnormal [Unknown]
  - Off label use [Unknown]
  - Intentional drug misuse [Unknown]
